FAERS Safety Report 8207697-9 (Version None)
Quarter: 2012Q1

REPORT INFORMATION
  Report Type: 
  Country: None (occurrence: None)
  Receive Date: 20120314
  Receipt Date: 20111130
  Transmission Date: 20120608
  Serious: No
  Sender: FDA-Public Use
  Company Number: US-MYLANLABS-2011S1024749

PATIENT
  Age: 81 Year
  Sex: Male

DRUGS (6)
  1. RAPAFLO [Suspect]
     Indication: PROSTATOMEGALY
     Route: 048
     Dates: start: 20110601
  2. CELEBREX [Suspect]
     Indication: PRODUCT USED FOR UNKNOWN INDICATION
  3. VERAPAMIL HYDROCHLORIDE [Suspect]
     Indication: BLOOD PRESSURE
  4. VERAPAMIL HYDROCHLORIDE [Suspect]
     Route: 048
  5. IBUPROFEN (ADVIL) [Suspect]
     Indication: PRODUCT USED FOR UNKNOWN INDICATION
  6. VERAPAMIL HYDROCHLORIDE [Suspect]
     Route: 048

REACTIONS (2)
  - DRUG INEFFECTIVE [None]
  - DRUG INTERACTION [None]
